FAERS Safety Report 7169860-8 (Version None)
Quarter: 2010Q4

REPORT INFORMATION
  Report Type: 
  Country: None (occurrence: None)
  Receive Date: 20101217
  Receipt Date: 20101208
  Transmission Date: 20110411
  Serious: Yes (Other)
  Sender: FDA-Public Use
  Company Number: PHHO2010GB03832

PATIENT
  Age: 55 Year
  Sex: Female

DRUGS (4)
  1. ZOLEDRONATE T29581+SOLINJ+BM [Suspect]
     Indication: METASTASES TO BONE
     Dosage: 4 MG
     Route: 042
     Dates: start: 20051109, end: 20090513
  2. VITAMIN D [Concomitant]
     Dosage: UNK
  3. CALCIUM [Concomitant]
  4. ANASTROZOLE [Concomitant]
     Indication: BREAST CANCER

REACTIONS (4)
  - JAW OPERATION [None]
  - OSTEONECROSIS OF JAW [None]
  - TOOTH DISORDER [None]
  - TOOTH EXTRACTION [None]
